FAERS Safety Report 6998327-2 (Version None)
Quarter: 2010Q3

REPORT INFORMATION
  Report Type: 
  Country: None (occurrence: None)
  Receive Date: 20100920
  Receipt Date: 20100906
  Transmission Date: 20110219
  Serious: Yes (Hospitalization)
  Sender: FDA-Public Use
  Company Number: JP-JNJFOC-20100608541

PATIENT
  Age: 30 Year
  Sex: Male
  Weight: 61 kg

DRUGS (8)
  1. REMICADE [Suspect]
     Indication: CROHN'S DISEASE
     Dosage: 19TH INFUSION
     Route: 042
  2. REMICADE [Suspect]
     Dosage: 19TH INFUSION
     Route: 042
  3. REMICADE [Suspect]
     Dosage: 18 INFUSIONS
     Route: 042
  4. PROMAC (POLAPREZINC) [Concomitant]
     Indication: CROHN'S DISEASE
     Route: 048
  5. HICEE [Concomitant]
     Indication: CROHN'S DISEASE
     Route: 048
  6. MAGNESIUM OXIDE [Concomitant]
     Indication: CONSTIPATION
     Route: 048
  7. BIOFERMIN [Concomitant]
     Indication: CROHN'S DISEASE
     Route: 048
  8. ELENTAL [Concomitant]
     Indication: CROHN'S DISEASE
     Route: 048

REACTIONS (1)
  - HERPES OESOPHAGITIS [None]
